FAERS Safety Report 25890465 (Version 1)
Quarter: 2025Q4

REPORT INFORMATION
  Report Type: Spontaneous
  Country: EU (occurrence: EU)
  Receive Date: 20251007
  Receipt Date: 20251007
  Transmission Date: 20260117
  Serious: Yes (Hospitalization)
  Sender: PFIZER
  Company Number: None

PATIENT
  Age: 6 Year
  Sex: Male
  Weight: 17.6 kg

DRUGS (13)
  1. TOPOTECAN HYDROCHLORIDE [Suspect]
     Active Substance: TOPOTECAN HYDROCHLORIDE
     Indication: Neuroblastoma
     Dosage: 0.55 MG, 1X/DAY
     Route: 042
     Dates: start: 20250909
  2. TEMOZOLOMIDE [Suspect]
     Active Substance: TEMOZOLOMIDE
     Indication: Neuroblastoma
     Dosage: 110 MG, 1X/DAY
     Route: 048
     Dates: start: 20250909
  3. DINUTUXIMAB BETA [Concomitant]
     Active Substance: DINUTUXIMAB BETA
     Indication: Neuroblastoma
     Dosage: 3.7 MG, 1X/DAY
     Route: 042
     Dates: start: 20250908, end: 20250910
  4. AMOXICILLIN [Concomitant]
     Active Substance: AMOXICILLIN
     Dosage: 1875 MG, 1X/DAY
     Route: 048
     Dates: start: 20250903, end: 20250909
  5. MORPHINE [Concomitant]
     Active Substance: MORPHINE
     Dosage: UNK
     Route: 042
     Dates: start: 20250908, end: 20250910
  6. GABAPENTIN [Concomitant]
     Active Substance: GABAPENTIN
     Dosage: UNK
     Route: 048
     Dates: start: 20250908
  7. METHYLPREDNISOLONE [Concomitant]
     Active Substance: METHYLPREDNISOLONE
     Dosage: 18 MG, SINGLE
     Route: 042
     Dates: start: 20250908, end: 20250908
  8. ACETAMINOPHEN [Concomitant]
     Active Substance: ACETAMINOPHEN
     Dosage: EVERY 6 HOURS
     Route: 042
     Dates: start: 20250908, end: 20250911
  9. RIVOTRIL [Concomitant]
     Active Substance: CLONAZEPAM
     Dosage: 15 DROP, SINGLE
     Route: 048
     Dates: start: 20250908, end: 20250910
  10. METOCLOPRAMIDE [Concomitant]
     Active Substance: METOCLOPRAMIDE
     Dosage: 7.5 MG, 1X/DAY
     Route: 048
     Dates: start: 20250909
  11. ONDANSETRON [Concomitant]
     Active Substance: ONDANSETRON
     Dosage: 8 MG, 1X/DAY
     Route: 048
     Dates: start: 20250909
  12. PREDNISOLONE [Concomitant]
     Active Substance: PREDNISOLONE
     Dosage: 10 MG, 1X/DAY
     Route: 048
     Dates: start: 20250903
  13. ALBUTEROL [Concomitant]
     Active Substance: ALBUTEROL
     Dosage: 5 MG, SINGLE
     Route: 055
     Dates: start: 20250909, end: 20250909

REACTIONS (1)
  - Altered state of consciousness [Recovered/Resolved]

NARRATIVE: CASE EVENT DATE: 20250910
